FAERS Safety Report 18405594 (Version 1)
Quarter: 2020Q4

REPORT INFORMATION
  Report Type: Spontaneous
  Country: US (occurrence: US)
  Receive Date: 20201020
  Receipt Date: 20201020
  Transmission Date: 20210114
  Serious: Yes (Other)
  Sender: FDA-Public Use
  Company Number: US-MYLANLABS-2020M1088144

PATIENT
  Age: 48 Year
  Sex: Male

DRUGS (5)
  1. VENETOCLAX. [Suspect]
     Active Substance: VENETOCLAX
     Dosage: 400 MILLIGRAM, QD
     Route: 065
  2. VENETOCLAX. [Suspect]
     Active Substance: VENETOCLAX
     Indication: ACUTE MYELOID LEUKAEMIA
     Dosage: 100 MILLIGRAM/DAY1,200 MG/DAY 2; 400 MG/DAY 3
     Route: 065
  3. AZACITIDINE. [Suspect]
     Active Substance: AZACITIDINE
     Indication: PROPHYLAXIS
  4. VENETOCLAX. [Suspect]
     Active Substance: VENETOCLAX
     Indication: PROPHYLAXIS
     Dosage: 200 MILLIGRAM
     Route: 065
  5. AZACITIDINE. [Suspect]
     Active Substance: AZACITIDINE
     Indication: ACUTE MYELOID LEUKAEMIA
     Dosage: 37.5 MILLIGRAM/SQ. METER AT A 50% REDUCED DOSE ON DAYS 1-5
     Route: 042

REACTIONS (2)
  - Off label use [Unknown]
  - Cytopenia [Recovering/Resolving]
